FAERS Safety Report 13978227 (Version 4)
Quarter: 2017Q4

REPORT INFORMATION
  Report Type: Report from Study
  Country: GB (occurrence: GB)
  Receive Date: 20170915
  Receipt Date: 20171003
  Transmission Date: 20180321
  Serious: Yes (Hospitalization)
  Sender: FDA-Public Use
  Company Number: GB-PFIZER INC-2017395513

PATIENT
  Age: 69 Year
  Sex: Male
  Weight: 91.2 kg

DRUGS (24)
  1. AXITINIB [Suspect]
     Active Substance: AXITINIB
     Dosage: 5 MG, ONCE
     Route: 048
     Dates: start: 20170823, end: 20170823
  2. RIVAROXABAN [Concomitant]
     Active Substance: RIVAROXABAN
     Dosage: 20 MG, UNK
     Dates: start: 201601
  3. ACETAMINOPHEN. [Concomitant]
     Active Substance: ACETAMINOPHEN
     Dosage: 1 G, UNK
     Dates: start: 20170604
  4. LOPERAMIDE [Concomitant]
     Active Substance: LOPERAMIDE
     Dosage: 2 MG, UNK
     Dates: start: 20170811
  5. AXITINIB [Suspect]
     Active Substance: AXITINIB
     Dosage: 6 MG, ONCE
     Route: 048
     Dates: start: 20170831, end: 20170831
  6. AXITINIB [Suspect]
     Active Substance: AXITINIB
     Dosage: 3 MG, ONCE
     Route: 048
     Dates: start: 20170905, end: 20170905
  7. AXITINIB [Suspect]
     Active Substance: AXITINIB
     Dosage: 6 MG, ONCE
     Route: 048
     Dates: start: 20170906, end: 20170910
  8. AXITINIB [Suspect]
     Active Substance: AXITINIB
     Dosage: 3 MG, ONCE
     Route: 048
     Dates: start: 20170911, end: 20170911
  9. AMITRIPTYLINE HYDROCHLORIDE. [Concomitant]
     Active Substance: AMITRIPTYLINE HYDROCHLORIDE
     Dosage: 25 MG, UNK
     Dates: start: 20170617
  10. BENZYDAMINE HYDROCHLORIDE [Concomitant]
     Active Substance: BENZYDAMINE HYDROCHLORIDE
     Dosage: 10 ML, UNK
     Dates: start: 20170802
  11. DIPROBASE [Concomitant]
     Active Substance: CHLOROCRESOL
     Dosage: 1 DF, UNK
     Dates: start: 20170802
  12. BISOPROLOL FUMARATE. [Concomitant]
     Active Substance: BISOPROLOL FUMARATE
     Dosage: 1.25 MG, UNK
     Dates: start: 20170608
  13. AMLODIPINE [Concomitant]
     Active Substance: AMLODIPINE BESYLATE
     Dosage: 5 MG, UNK
     Dates: start: 20170802
  14. IBUPROFEN. [Concomitant]
     Active Substance: IBUPROFEN
     Dosage: 200 MG, UNK
     Dates: start: 20170607
  15. PREGABALIN. [Concomitant]
     Active Substance: PREGABALIN
     Dosage: 75 MG, UNK
     Dates: start: 20170712
  16. AXITINIB [Suspect]
     Active Substance: AXITINIB
     Indication: RENAL CELL CARCINOMA
     Dosage: 5 MG, 2X/DAY
     Route: 048
     Dates: start: 20170601, end: 20170822
  17. PEMBROLIZUMAB. [Suspect]
     Active Substance: PEMBROLIZUMAB
     Indication: RENAL CELL CARCINOMA
     Dosage: 200 MG, Q3W (VOLUME OF INFUSION 108 ML)
     Route: 042
     Dates: start: 20170601, end: 20170803
  18. PEMBROLIZUMAB. [Suspect]
     Active Substance: PEMBROLIZUMAB
     Dosage: 200 MG, Q3W
     Route: 042
     Dates: start: 20170824, end: 20170824
  19. PEMBROLIZUMAB. [Suspect]
     Active Substance: PEMBROLIZUMAB
     Dosage: 200 MG, Q3W
     Route: 042
     Dates: start: 20170914
  20. ALLOPURINOL. [Concomitant]
     Active Substance: ALLOPURINOL
     Dosage: 100 MG, UNK
     Dates: start: 201201
  21. LEVOTHYROXINE SODIUM. [Concomitant]
     Active Substance: LEVOTHYROXINE SODIUM
     Dosage: 50 UG, UNK
     Dates: start: 20170802
  22. AXITINIB [Suspect]
     Active Substance: AXITINIB
     Dosage: 6 MG, ONCE
     Route: 048
     Dates: start: 20170901, end: 20170904
  23. AXITINIB [Suspect]
     Active Substance: AXITINIB
     Dosage: 3 MG, ONCE
     Route: 048
     Dates: start: 20170912, end: 20170913
  24. HYDROCHLOROTHIAZIDE (+) IRBESARTAN [Concomitant]
     Active Substance: HYDROCHLOROTHIAZIDE\IRBESARTAN
     Dosage: 1 DF, UNK
     Dates: start: 201201

REACTIONS (1)
  - Atrial fibrillation [Recovered/Resolved]

NARRATIVE: CASE EVENT DATE: 20170905
